FAERS Safety Report 15223144 (Version 1)
Quarter: 2018Q3

REPORT INFORMATION
  Report Type: Spontaneous
  Country: US (occurrence: US)
  Receive Date: 20180705
  Receipt Date: 20180705
  Transmission Date: 20181010
  Serious: No
  Sender: FDA-Public Use
  Company Number: None

PATIENT
  Age: 48 Year
  Sex: Female
  Weight: 60.33 kg

DRUGS (8)
  1. CREST PRO?HEALTH CLINICAL [Suspect]
     Active Substance: CETYLPYRIDINIUM CHLORIDE
     Indication: PROPHYLAXIS
     Dates: start: 20180619, end: 20180622
  2. FOCUS FACTOR [Concomitant]
  3. VITAMIN D3 [Concomitant]
     Active Substance: CHOLECALCIFEROL
  4. CREST PRO?HEALTH CLINICAL [Suspect]
     Active Substance: CETYLPYRIDINIUM CHLORIDE
     Indication: DENTAL PLAQUE
     Dates: start: 20180619, end: 20180622
  5. CALCIUM [Concomitant]
     Active Substance: CALCIUM
  6. CREST PRO?HEALTH CLINICAL [Suspect]
     Active Substance: CETYLPYRIDINIUM CHLORIDE
     Indication: DENTAL DISORDER PROPHYLAXIS
     Dates: start: 20180619, end: 20180622
  7. ZONISAMIDE. [Concomitant]
     Active Substance: ZONISAMIDE
  8. MYDAYIS [Concomitant]
     Active Substance: AMPHETAMINE ASPARTATE\AMPHETAMINE SULFATE\DEXTROAMPHETAMINE SACCHARATE\DEXTROAMPHETAMINE SULFATE

REACTIONS (8)
  - Oral mucosal exfoliation [None]
  - Oral disorder [None]
  - Oral discomfort [None]
  - Product physical issue [None]
  - Aphthous ulcer [None]
  - Tongue ulceration [None]
  - Gingival pruritus [None]
  - Gingival discomfort [None]

NARRATIVE: CASE EVENT DATE: 20180620
